FAERS Safety Report 4506515-X (Version None)
Quarter: 2004Q4

REPORT INFORMATION
  Report Type: 
  Country: None (occurrence: None)
  Receive Date: 20041122
  Receipt Date: 20041110
  Transmission Date: 20050328
  Serious: Yes (Hospitalization)
  Sender: FDA-Public Use
  Company Number: FR-ABBOTT-04P-056-0280222-00

PATIENT
  Age: 79 Year
  Sex: Male

DRUGS (6)
  1. FENOFIBRATE [Suspect]
     Indication: DRUG USE FOR UNKNOWN INDICATION
     Route: 048
  2. FLUINDIONE [Concomitant]
     Indication: DRUG USE FOR UNKNOWN INDICATION
  3. FLECAINIDE ACETATE [Concomitant]
     Indication: DRUG USE FOR UNKNOWN INDICATION
  4. BISELECT [Concomitant]
     Indication: DRUG USE FOR UNKNOWN INDICATION
  5. IRBESARTAN [Concomitant]
     Indication: DRUG USE FOR UNKNOWN INDICATION
  6. TRIMEBUTINE MALEATE [Concomitant]
     Indication: DRUG USE FOR UNKNOWN INDICATION

REACTIONS (13)
  - ANURIA [None]
  - BLOOD CREATINE PHOSPHOKINASE INCREASED [None]
  - DEHYDRATION [None]
  - HYPONATRAEMIA [None]
  - OLIGURIA [None]
  - PROSTATIC DISORDER [None]
  - PYELONEPHRITIS [None]
  - RENAL CYST [None]
  - RENAL IMPAIRMENT [None]
  - RESIDUAL URINE VOLUME [None]
  - RHABDOMYOLYSIS [None]
  - UNEVALUABLE EVENT [None]
  - URINARY TRACT INFECTION [None]
